FAERS Safety Report 23917796 (Version 2)
Quarter: 2024Q2

REPORT INFORMATION
  Report Type: Report from Study
  Country: MX (occurrence: MX)
  Receive Date: 20240530
  Receipt Date: 20240604
  Transmission Date: 20240716
  Serious: Yes (Hospitalization)
  Sender: FDA-Public Use
  Company Number: MX-JNJFOC-20231146163

PATIENT
  Age: 59 Year

DRUGS (21)
  1. SPRAVATO [Suspect]
     Active Substance: ESKETAMINE
     Indication: Depression
     Dates: start: 20231115, end: 20231115
  2. SPRAVATO [Suspect]
     Active Substance: ESKETAMINE
     Dates: start: 20231117, end: 20231117
  3. SPRAVATO [Suspect]
     Active Substance: ESKETAMINE
     Dates: start: 20231120, end: 20231120
  4. SPRAVATO [Suspect]
     Active Substance: ESKETAMINE
     Dates: start: 20231124, end: 20231124
  5. SPRAVATO [Suspect]
     Active Substance: ESKETAMINE
     Dosage: DOSE WAS UNKNOWN
     Dates: start: 20231201, end: 20231201
  6. SPRAVATO [Suspect]
     Active Substance: ESKETAMINE
     Dates: start: 202312, end: 202312
  7. SPRAVATO [Suspect]
     Active Substance: ESKETAMINE
     Dates: start: 20231208, end: 20231208
  8. SPRAVATO [Suspect]
     Active Substance: ESKETAMINE
     Dates: start: 20231212, end: 20231212
  9. SPRAVATO [Suspect]
     Active Substance: ESKETAMINE
     Dates: start: 20231219, end: 20231219
  10. SPRAVATO [Suspect]
     Active Substance: ESKETAMINE
     Dates: start: 20240109, end: 20240109
  11. SPRAVATO [Suspect]
     Active Substance: ESKETAMINE
     Dosage: DOSE UNKNOWN
  12. SPRAVATO [Suspect]
     Active Substance: ESKETAMINE
     Dates: start: 20240511, end: 20240511
  13. SPRAVATO [Suspect]
     Active Substance: ESKETAMINE
     Dates: start: 20240520, end: 20240520
  14. ACATAR [DEXTROMETHORPHAN HYDROBROMIDE;GUAIFENESIN] [Concomitant]
  15. LITHIUM [Concomitant]
     Active Substance: LITHIUM
     Dosage: 1 IN THE MORNING AND 1 AT NIGHT
  16. LEVOMEPROMAZINE MALEATE [Concomitant]
     Active Substance: LEVOMEPROMAZINE MALEATE
     Dosage: 1 AT NIGHT
  17. PROPRANOLOL HYDROCHLORIDE [Concomitant]
     Active Substance: PROPRANOLOL HYDROCHLORIDE
     Dosage: ONE IN THE EVENING
     Route: 065
  18. KARET [Concomitant]
     Dosage: MORNING IN FASTING
     Route: 065
  19. VENLAFAXINE [Concomitant]
     Active Substance: VENLAFAXINE HYDROCHLORIDE
     Route: 065
  20. CLONAZEPAM [Concomitant]
     Active Substance: CLONAZEPAM
     Route: 065
  21. LITHIUM CARBONATE [Concomitant]
     Active Substance: LITHIUM CARBONATE
     Route: 065

REACTIONS (6)
  - Cholecystectomy [Recovered/Resolved]
  - Post procedural complication [Recovered/Resolved]
  - Sedation [Recovered/Resolved]
  - Dissociation [Recovered/Resolved]
  - Headache [Recovered/Resolved]
  - Blood pressure increased [Unknown]

NARRATIVE: CASE EVENT DATE: 20231115
